FAERS Safety Report 6791388-5 (Version None)
Quarter: 2010Q2

REPORT INFORMATION
  Report Type: 
  Country: None (occurrence: None)
  Receive Date: 20100624
  Receipt Date: 20100312
  Transmission Date: 20101027
  Serious: No
  Sender: FDA-Public Use
  Company Number: US-BAUSCH-2010BL001385

PATIENT
  Age: 78 Year
  Sex: Female
  Weight: 82 kg

DRUGS (2)
  1. BESIVANCE [Suspect]
     Indication: CONJUNCTIVITIS
     Route: 047
     Dates: start: 20100302, end: 20100310
  2. THERA TEARS [Concomitant]
     Indication: DRY EYE
     Route: 047

REACTIONS (3)
  - EYE PAIN [None]
  - HEADACHE [None]
  - OCULAR HYPERAEMIA [None]
